FAERS Safety Report 23858914 (Version 3)
Quarter: 2024Q2

REPORT INFORMATION
  Report Type: Spontaneous
  Country: US (occurrence: US)
  Receive Date: 20240515
  Receipt Date: 20240605
  Transmission Date: 20240715
  Serious: No
  Sender: FDA-Public Use
  Company Number: US-VERTEX PHARMACEUTICALS-2024-008046

PATIENT
  Age: 8 Year
  Sex: Male

DRUGS (4)
  1. TRIKAFTA [Suspect]
     Active Substance: ELEXACAFTOR\IVACAFTOR\TEZACAFTOR
     Indication: Cystic fibrosis
     Dosage: UNKNOWN DOSAGE REGIMEN
     Route: 048
     Dates: start: 20220208, end: 2022
  2. TRIKAFTA [Suspect]
     Active Substance: ELEXACAFTOR\IVACAFTOR\TEZACAFTOR
     Dosage: INCREASED TO ADULT DOSE
     Route: 048
     Dates: start: 20220712
  3. TRIKAFTA [Suspect]
     Active Substance: ELEXACAFTOR\IVACAFTOR\TEZACAFTOR
     Dosage: REMOVED BLUE EVENING TABLET
     Route: 048
     Dates: start: 202307
  4. TRIKAFTA [Suspect]
     Active Substance: ELEXACAFTOR\IVACAFTOR\TEZACAFTOR
     Dosage: ONE ORANGE TABLET AT NIGHT
     Route: 048
     Dates: start: 20240312

REACTIONS (5)
  - Decreased interest [Recovered/Resolved]
  - Oppositional defiant disorder [Recovered/Resolved]
  - Initial insomnia [Recovering/Resolving]
  - Middle insomnia [Recovering/Resolving]
  - Sweat test abnormal [Not Recovered/Not Resolved]

NARRATIVE: CASE EVENT DATE: 20220712
